FAERS Safety Report 9829154 (Version 3)
Quarter: 2014Q1

REPORT INFORMATION
  Report Type: Spontaneous
  Country: NL (occurrence: NL)
  Receive Date: 20140119
  Receipt Date: 20140211
  Transmission Date: 20141002
  Serious: Yes (Death)
  Sender: FDA-Public Use
  Company Number: NL-LUNDBECK-DKLU1096672

PATIENT
  Age: 51 Year
  Sex: Female

DRUGS (3)
  1. FRISIUM [Suspect]
     Indication: EPILEPSY
     Route: 048
     Dates: start: 20080111
  2. VIMPAT [Suspect]
     Indication: EPILEPSY
     Route: 048
     Dates: start: 20110318
  3. KEPPRA [Suspect]
     Indication: EPILEPSY
     Route: 048
     Dates: start: 20090303

REACTIONS (2)
  - Completed suicide [Fatal]
  - Depressed mood [Unknown]
